FAERS Safety Report 12074209 (Version 1)
Quarter: 2016Q1

REPORT INFORMATION
  Report Type: Spontaneous
  Country: AR (occurrence: AR)
  Receive Date: 20160212
  Receipt Date: 20160212
  Transmission Date: 20160526
  Serious: Yes (Other)
  Sender: FDA-Public Use
  Company Number: AR-JNJFOC-20160209778

PATIENT
  Age: 42 Year
  Sex: Female
  Weight: 96 kg

DRUGS (8)
  1. NAPROXEN. [Concomitant]
     Active Substance: NAPROXEN
     Route: 048
  2. INFLIXIMAB, RECOMBINANT [Suspect]
     Active Substance: INFLIXIMAB
     Indication: RHEUMATOID ARTHRITIS
     Route: 042
     Dates: start: 20151120
  3. METHOTREXATE [Concomitant]
     Active Substance: METHOTREXATE
     Route: 048
  4. INFLIXIMAB, RECOMBINANT [Suspect]
     Active Substance: INFLIXIMAB
     Indication: RHEUMATOID ARTHRITIS
     Route: 042
     Dates: start: 20160120
  5. METHOTREXATE [Concomitant]
     Active Substance: METHOTREXATE
     Route: 048
  6. INFLIXIMAB, RECOMBINANT [Suspect]
     Active Substance: INFLIXIMAB
     Indication: RHEUMATOID ARTHRITIS
     Route: 042
     Dates: start: 20151210
  7. FOLIC ACID. [Concomitant]
     Active Substance: FOLIC ACID
     Route: 048
  8. PREDNISONE. [Concomitant]
     Active Substance: PREDNISONE
     Route: 048

REACTIONS (6)
  - Infusion related reaction [Recovered/Resolved]
  - Wheezing [Unknown]
  - Dyspnoea [Recovered/Resolved]
  - Snoring [Unknown]
  - Urticaria [Recovered/Resolved]
  - Chest pain [Recovered/Resolved]

NARRATIVE: CASE EVENT DATE: 20151210
